FAERS Safety Report 8395584-5 (Version None)
Quarter: 2012Q2

REPORT INFORMATION
  Report Type: 
  Country: None (occurrence: None)
  Receive Date: 20120530
  Receipt Date: 20110928
  Transmission Date: 20120825
  Serious: No
  Sender: FDA-Public Use
  Company Number: US-GLAXOSMITHKLINE-A0946647A

PATIENT
  Sex: Male

DRUGS (1)
  1. VENTOLIN [Suspect]
     Indication: PRODUCT USED FOR UNKNOWN INDICATION
     Route: 055
     Dates: start: 20090101

REACTIONS (5)
  - ILL-DEFINED DISORDER [None]
  - ADVERSE EVENT [None]
  - SINUS DISORDER [None]
  - PRODUCT QUALITY ISSUE [None]
  - THROAT TIGHTNESS [None]
